FAERS Safety Report 5304104-0 (Version None)
Quarter: 2007Q2

REPORT INFORMATION
  Report Type: 
  Country: None (occurrence: None)
  Receive Date: 20070422
  Receipt Date: 20070409
  Transmission Date: 20071010
  Serious: Yes (Hospitalization)
  Sender: FDA-Public Use
  Company Number: US-ELI_LILLY_AND_COMPANY-US200704002021

PATIENT
  Age: 78 Year
  Sex: Female

DRUGS (8)
  1. FORTEO [Suspect]
     Indication: OSTEOPOROSIS
     Dosage: 20 UG, UNK
  2. FIORICET [Concomitant]
  3. LOTRIMIN CREAM [Concomitant]
  4. CALTRATE + D [Concomitant]
  5. TUMS [Concomitant]
  6. ZOCOR [Concomitant]
     Dosage: 20 MG, UNK
  7. ACTONEL [Concomitant]
  8. ZANTAC [Concomitant]

REACTIONS (4)
  - ASTHENIA [None]
  - MALAISE [None]
  - MYALGIA [None]
  - NAUSEA [None]
